FAERS Safety Report 22264977 (Version 1)
Quarter: 2023Q2

REPORT INFORMATION
  Report Type: Spontaneous
  Country: US (occurrence: None)
  Receive Date: 20230426
  Receipt Date: 20230426
  Transmission Date: 20230721
  Serious: No
  Sender: FDA-Public Use
  Company Number: None

PATIENT
  Sex: Female

DRUGS (2)
  1. CUVITRU [Suspect]
     Active Substance: HUMAN IMMUNOGLOBULIN G
     Indication: Immune system disorder
     Dosage: OTHER STRENGTH : 10/50 GM/ML;?FREQUENCY : WEEKLY;?
     Route: 058
     Dates: start: 202211
  2. CUVITRU [Suspect]
     Active Substance: HUMAN IMMUNOGLOBULIN G
     Indication: Immune system disorder
     Dosage: OTHER STRENGTH : 2/10 GM/ML;?FREQUENCY : WEEKLY;?
     Route: 058
     Dates: start: 202211

REACTIONS (6)
  - Encephalitis [None]
  - Amnesia [None]
  - Asthenia [None]
  - Fall [None]
  - Screaming [None]
  - Product quality issue [None]
